FAERS Safety Report 8188716-5 (Version None)
Quarter: 2012Q1

REPORT INFORMATION
  Report Type: 
  Country: None (occurrence: None)
  Receive Date: 20120306
  Receipt Date: 20120217
  Transmission Date: 20120608
  Serious: Yes (Other)
  Sender: FDA-Public Use
  Company Number: US-ASTRAZENECA-2012SE05969

PATIENT
  Age: 66 Year
  Sex: Female

DRUGS (11)
  1. VIT D2 [Concomitant]
     Route: 048
  2. POTASSIUM CL [Concomitant]
  3. LISINOPRIL [Suspect]
     Route: 048
  4. ZOFRAN [Concomitant]
     Dosage: EVERY 8 HOURS AS REQUIRED
  5. NEXIUM [Suspect]
     Route: 048
  6. SULFA DRUGS [Concomitant]
     Route: 065
  7. METOPROLOL SUCCINATE [Concomitant]
     Route: 048
  8. LEVOTHYROXINE SODIUM [Concomitant]
  9. LORAZEPAM [Concomitant]
  10. HYDROCHLOROTHIAZIDE [Concomitant]
     Route: 065
  11. FUROSEMIDE [Concomitant]
     Dosage: 20 MG EVERY DAY AS REQUIRED

REACTIONS (5)
  - URINE OUTPUT DECREASED [None]
  - MUSCLE SPASMS [None]
  - ABDOMINAL DISCOMFORT [None]
  - NEOPLASM MALIGNANT [None]
  - LUNG NEOPLASM [None]
